FAERS Safety Report 21824498 (Version 1)
Quarter: 2023Q1

REPORT INFORMATION
  Report Type: Spontaneous
  Country: US (occurrence: US)
  Receive Date: 20230105
  Receipt Date: 20230105
  Transmission Date: 20230417
  Serious: No
  Sender: FDA-Public Use
  Company Number: US-ALLERGAN-2234822US

PATIENT
  Sex: Female

DRUGS (7)
  1. UBRELVY [Suspect]
     Active Substance: UBROGEPANT
     Indication: Migraine
  2. NURTEC ODT [Suspect]
     Active Substance: RIMEGEPANT SULFATE
     Indication: Product used for unknown indication
     Dosage: IN THE MORNING
     Route: 048
     Dates: start: 20220913
  3. NURTEC ODT [Suspect]
     Active Substance: RIMEGEPANT SULFATE
     Dosage: IN THE MORNING
     Route: 048
     Dates: start: 20220503, end: 2022
  4. AJOVY [Concomitant]
     Active Substance: FREMANEZUMAB-VFRM
  5. MESTINON [Concomitant]
     Active Substance: PYRIDOSTIGMINE BROMIDE
  6. GABAPENTIN [Concomitant]
     Active Substance: GABAPENTIN
  7. SODIUM CHLORIDE [Concomitant]
     Active Substance: SODIUM CHLORIDE
     Dosage: 3 L SALINE PER DAY PRN + A BAG OF TPN IV PRN (3 LIT,3 L SALINE PER DAY PRN)

REACTIONS (7)
  - Poor quality product administered [Unknown]
  - Product use issue [Unknown]
  - Incorrect dose administered [Unknown]
  - Hypertension [Unknown]
  - Product distribution issue [Unknown]
  - Product temperature excursion issue [Unknown]
  - Migraine [Unknown]

NARRATIVE: CASE EVENT DATE: 20220101
